FAERS Safety Report 5022453-0 (Version None)
Quarter: 2006Q2

REPORT INFORMATION
  Report Type: 
  Country: None (occurrence: None)
  Receive Date: 20060609
  Receipt Date: 20060301
  Transmission Date: 20061013
  Serious: Yes (Other)
  Sender: FDA-Public Use
  Company Number: US-ROCHE-438831

PATIENT
  Age: 24 Year
  Sex: Female
  Weight: 63.5 kg

DRUGS (5)
  1. ACCUTANE [Suspect]
     Indication: ACNE
     Route: 048
     Dates: start: 19830615, end: 19830615
  2. ACCUTANE [Suspect]
     Route: 048
     Dates: start: 19840813
  3. ACCUTANE [Suspect]
     Dosage: ACCUTANE DECREASED TO 1 DAILY OR ONE ONCE DAILY OR ONE TWICE WEEKLY.
     Route: 048
     Dates: start: 19850114, end: 19850314
  4. ACCUTANE [Suspect]
     Route: 048
     Dates: start: 19870115, end: 19870615
  5. 1 CONCOMITANT DRUG [Concomitant]
     Indication: HEADACHE
     Dosage: DRUG REPORTED AS ASPIRIN/TYLENOL.

REACTIONS (59)
  - ADENOMYOSIS [None]
  - ANXIETY [None]
  - APHTHOUS STOMATITIS [None]
  - ARTHRALGIA [None]
  - ARTHRITIS [None]
  - ASTHENIA [None]
  - BURNING SENSATION [None]
  - BURSITIS [None]
  - CERVICITIS [None]
  - CHEST PAIN [None]
  - CHRONIC FATIGUE SYNDROME [None]
  - CLOSTRIDIUM DIFFICILE COLITIS [None]
  - COLITIS ULCERATIVE [None]
  - COLON ADENOMA [None]
  - CROHN'S DISEASE [None]
  - DEPRESSION [None]
  - DIARRHOEA HAEMORRHAGIC [None]
  - DIZZINESS [None]
  - DYSMENORRHOEA [None]
  - DYSPNOEA [None]
  - ENDOMETRIOSIS [None]
  - ENTEROCOLITIS HAEMORRHAGIC [None]
  - ESSENTIAL HYPERTENSION [None]
  - FATIGUE [None]
  - FIBROMYALGIA [None]
  - GASTROENTERITIS [None]
  - HEART INJURY [None]
  - HEPATIC ENZYME INCREASED [None]
  - HERPES SIMPLEX [None]
  - HODGKIN'S DISEASE [None]
  - HYPERHIDROSIS [None]
  - INFERTILITY [None]
  - INFLAMMATORY BOWEL DISEASE [None]
  - INTESTINAL OBSTRUCTION [None]
  - LIVER DISORDER [None]
  - MITRAL VALVE INCOMPETENCE [None]
  - MITRAL VALVE PROLAPSE [None]
  - NASAL SEPTUM DEVIATION [None]
  - NIGHT BLINDNESS [None]
  - NON-HODGKIN'S LYMPHOMA [None]
  - OSTEOARTHRITIS [None]
  - PANCREATITIS [None]
  - PANIC DISORDER [None]
  - PHARYNGOLARYNGEAL PAIN [None]
  - PRURITUS [None]
  - PULMONARY VALVE INCOMPETENCE [None]
  - RENAL DISORDER [None]
  - SALIVARY GLAND MASS [None]
  - SLEEP APNOEA SYNDROME [None]
  - STRESS [None]
  - SYNCOPE [None]
  - SYNCOPE VASOVAGAL [None]
  - SYSTEMIC LUPUS ERYTHEMATOSUS [None]
  - TRANSIENT ISCHAEMIC ATTACK [None]
  - TREMOR [None]
  - TRICUSPID VALVE INCOMPETENCE [None]
  - UTERINE CYST [None]
  - VENTRICULAR EXTRASYSTOLES [None]
  - VISION BLURRED [None]
